FAERS Safety Report 16004891 (Version 1)
Quarter: 2019Q1

REPORT INFORMATION
  Report Type: Spontaneous
  Country: GB (occurrence: GB)
  Receive Date: 20190226
  Receipt Date: 20190226
  Transmission Date: 20190418
  Serious: Yes (Other)
  Sender: FDA-Public Use
  Company Number: GB-B.I. PHARMACEUTICALS,INC./RIDGEFIELD-2019-12-000654

PATIENT
  Age: 81 Year
  Sex: Male
  Weight: 57 kg

DRUGS (1)
  1. TRAJENTA [Suspect]
     Active Substance: LINAGLIPTIN
     Indication: DIABETES MELLITUS
     Route: 065
     Dates: start: 2012, end: 2017

REACTIONS (10)
  - Gingival recession [Not Recovered/Not Resolved]
  - Dry skin [Recovering/Resolving]
  - Dysgeusia [Not Recovered/Not Resolved]
  - Joint swelling [Recovered/Resolved]
  - Blister [Not Recovered/Not Resolved]
  - Dry mouth [Not Recovered/Not Resolved]
  - Malaise [Not Recovered/Not Resolved]
  - Loose tooth [Not Recovered/Not Resolved]
  - Gingival pain [Not Recovered/Not Resolved]
  - Palatal swelling [Recovered/Resolved]

NARRATIVE: CASE EVENT DATE: 2012
